FAERS Safety Report 21671462 (Version 1)
Quarter: 2022Q4

REPORT INFORMATION
  Report Type: Report from Study
  Country: FR (occurrence: None)
  Receive Date: 20221202
  Receipt Date: 20221202
  Transmission Date: 20230112
  Serious: Yes (Life-Threatening, Hospitalization)
  Sender: FDA-Public Use
  Company Number: FR-ROCHE-3222667

PATIENT
  Age: 75 Year
  Sex: Female
  Weight: 63 kg

DRUGS (3)
  1. ATEZOLIZUMAB [Suspect]
     Active Substance: ATEZOLIZUMAB
     Indication: Ovarian cancer
     Dosage: ON 17/OCT/2022, SHE RECEIVED LAST DOSE OF ATEZOLIZUMAB PRIOR TO ADVERSE EVENT.
     Route: 041
     Dates: start: 20210914, end: 20221128
  2. BEVACIZUMAB [Suspect]
     Active Substance: BEVACIZUMAB
     Indication: Ovarian cancer
     Dosage: LAST DOSE PRIOR TO ADVERSE EVENT ON 03/OCT/2022
     Route: 042
     Dates: start: 20210914, end: 20221115
  3. PACLITAXEL [Suspect]
     Active Substance: PACLITAXEL
     Indication: Ovarian cancer
     Dosage: LAST DOSE PRIOR TO ADVERSE EVENT ON 04/JAN/2022
     Route: 042
     Dates: start: 20210914

REACTIONS (2)
  - Myocardial infarction [Recovered/Resolved with Sequelae]
  - Coronary artery occlusion [Recovered/Resolved with Sequelae]

NARRATIVE: CASE EVENT DATE: 20221114
